FAERS Safety Report 19148143 (Version 1)
Quarter: 2021Q2

REPORT INFORMATION
  Report Type: Spontaneous
  Country: US (occurrence: US)
  Receive Date: 20210417
  Receipt Date: 20210417
  Transmission Date: 20210717
  Serious: Yes (Life-Threatening, Hospitalization, Other)
  Sender: FDA-Public Use
  Company Number: US-DRREDDYS-USA/USA/21/0134444

PATIENT
  Age: 69 Year
  Sex: Male

DRUGS (3)
  1. OXYGEN. [Concomitant]
     Active Substance: OXYGEN
     Indication: COVID-19
  2. HEPARIN SODIUM. [Suspect]
     Active Substance: HEPARIN SODIUM
     Indication: COVID-19
     Route: 042
  3. REMDESIVIR. [Concomitant]
     Active Substance: REMDESIVIR
     Indication: COVID-19

REACTIONS (2)
  - Retroperitoneal haemorrhage [Unknown]
  - Chest wall haematoma [Unknown]
